FAERS Safety Report 21706090 (Version 1)
Quarter: 2022Q4

REPORT INFORMATION
  Report Type: Report from Study
  Country: FR (occurrence: None)
  Receive Date: 20221209
  Receipt Date: 20221209
  Transmission Date: 20230113
  Serious: Yes (Death)
  Sender: FDA-Public Use
  Company Number: 2022A397397

PATIENT
  Age: 939 Month
  Sex: Male
  Weight: 72 kg

DRUGS (1)
  1. EVUSHELD [Suspect]
     Active Substance: CILGAVIMAB\TIXAGEVIMAB
     Indication: COVID-19 prophylaxis
     Dosage: ONCE/SINGLE ADMINISTRATION ONCE/SINGLE ADMINISTRATION
     Route: 030
     Dates: start: 20220127

REACTIONS (3)
  - General physical condition abnormal [Fatal]
  - Sepsis [Fatal]
  - Non-Hodgkin^s lymphoma [Fatal]

NARRATIVE: CASE EVENT DATE: 20220501
